FAERS Safety Report 5209786-X (Version None)
Quarter: 2007Q1

REPORT INFORMATION
  Report Type: 
  Country: None (occurrence: None)
  Receive Date: 20070104
  Receipt Date: 20061221
  Transmission Date: 20070707
  Serious: Yes (Other)
  Sender: FDA-Public Use
  Company Number: 200610426BBE

PATIENT
  Age: 46 Year
  Sex: Male

DRUGS (1)
  1. GAMUNEX [Suspect]
     Indication: DERMATOMYOSITIS

REACTIONS (1)
  - HEPATITIS B [None]
